FAERS Safety Report 22915940 (Version 2)
Quarter: 2024Q1

REPORT INFORMATION
  Report Type: Spontaneous
  Country: US (occurrence: US)
  Receive Date: 20230907
  Receipt Date: 20240308
  Transmission Date: 20240409
  Serious: No
  Sender: FDA-Public Use
  Company Number: US-TRAVERE-2023TVT00384

PATIENT
  Age: 68 Year
  Sex: Male

DRUGS (2)
  1. FILSPARI [Suspect]
     Active Substance: SPARSENTAN
     Indication: IgA nephropathy
     Route: 048
  2. UNSPECIFIED INGREDIENT [Concomitant]
     Active Substance: UNSPECIFIED INGREDIENT
     Route: 048

REACTIONS (9)
  - Rhinorrhoea [Recovering/Resolving]
  - Cough [Recovering/Resolving]
  - Asthenia [Recovering/Resolving]
  - Illness [None]
  - Decreased appetite [Recovering/Resolving]
  - Gait inability [Recovering/Resolving]
  - Blood pressure decreased [Recovering/Resolving]
  - Dyspnoea [Recovering/Resolving]
  - Weight decreased [Unknown]

NARRATIVE: CASE EVENT DATE: 20230730
